FAERS Safety Report 7210524-X (Version None)
Quarter: 2010Q4

REPORT INFORMATION
  Report Type: 
  Country: None (occurrence: None)
  Receive Date: 20101228
  Receipt Date: 20101213
  Transmission Date: 20110411
  Serious: Yes (Death)
  Sender: FDA-Public Use
  Company Number: AE 2010-421

PATIENT
  Age: 65 Year
  Sex: Female

DRUGS (1)
  1. FAZACLO ODT [Suspect]
     Dosage: 275 TO 600 MG DAILY PO
     Route: 048
     Dates: start: 20100125, end: 20101031

REACTIONS (1)
  - DEATH [None]
